FAERS Safety Report 7044160-5 (Version None)
Quarter: 2010Q4

REPORT INFORMATION
  Report Type: 
  Country: None (occurrence: None)
  Receive Date: 20101013
  Receipt Date: 20100929
  Transmission Date: 20110411
  Serious: No
  Sender: FDA-Public Use
  Company Number: US-PFIZER INC-2007106610

PATIENT
  Sex: Female
  Weight: 53.515 kg

DRUGS (1)
  1. XALATAN [Suspect]
     Indication: GLAUCOMA
     Dosage: UNK, 1 DROP IN EACH EYE DAILY
     Route: 047

REACTIONS (6)
  - DRUG ADMINISTRATION ERROR [None]
  - EYE IRRITATION [None]
  - EYE PAIN [None]
  - HYPOTENSION [None]
  - MALAISE [None]
  - MIDDLE INSOMNIA [None]
